FAERS Safety Report 12613704 (Version 1)
Quarter: 2016Q3

REPORT INFORMATION
  Report Type: Spontaneous
  Country: US (occurrence: US)
  Receive Date: 20160802
  Receipt Date: 20160802
  Transmission Date: 20161109
  Serious: Yes (Other)
  Sender: FDA-Public Use
  Company Number: US-TAIHO ONCOLOGY INC-EU-2016-01808

PATIENT
  Age: 66 Year
  Sex: Male

DRUGS (6)
  1. LONSURF [Suspect]
     Active Substance: TIPIRACIL HYDROCHLORIDE\TRIFLURIDINE
     Indication: COLORECTAL CANCER
     Route: 048
     Dates: start: 20160330, end: 2016
  2. FENTANYL. [Concomitant]
     Active Substance: FENTANYL
     Dosage: NI
  3. ATIVAN [Concomitant]
     Active Substance: LORAZEPAM
     Dosage: NI
  4. CALCIUM [Concomitant]
     Active Substance: CALCIUM
     Dosage: NI
  5. FLOMAX [Concomitant]
     Active Substance: TAMSULOSIN HYDROCHLORIDE
     Dosage: NI
  6. CYCLOBENZAPRINE [Concomitant]
     Active Substance: CYCLOBENZAPRINE
     Dosage: NI

REACTIONS (2)
  - White blood cell count decreased [Unknown]
  - Transfusion [Unknown]

NARRATIVE: CASE EVENT DATE: 201606
